FAERS Safety Report 21053516 (Version 3)
Quarter: 2022Q3

REPORT INFORMATION
  Report Type: Spontaneous
  Country: FR (occurrence: FR)
  Receive Date: 20220707
  Receipt Date: 20220823
  Transmission Date: 20221026
  Serious: Yes (Other)
  Sender: FDA-Public Use
  Company Number: FR-NOVARTISPH-NVSC2022FR153052

PATIENT
  Sex: Male

DRUGS (1)
  1. VALSARTAN [Suspect]
     Active Substance: VALSARTAN
     Indication: Hypertension
     Dosage: 80 MG, STARTED SEVERAL YEARS AGO
     Route: 065
     Dates: end: 20220630

REACTIONS (5)
  - Laryngeal oedema [Unknown]
  - Lip swelling [Unknown]
  - Ear swelling [Not Recovered/Not Resolved]
  - Nasal oedema [Not Recovered/Not Resolved]
  - Pharyngeal swelling [Not Recovered/Not Resolved]
